FAERS Safety Report 9051319 (Version 1)
Quarter: 2013Q1

REPORT INFORMATION
  Report Type: Spontaneous
  Country: US (occurrence: US)
  Receive Date: 20130206
  Receipt Date: 20130206
  Transmission Date: 20140127
  Serious: No
  Sender: FDA-Public Use
  Company Number: US-009507513-1302USA000713

PATIENT
  Age: 24 None
  Sex: Female
  Weight: 90.7 kg

DRUGS (3)
  1. IMPLANON [Suspect]
     Indication: CONTRACEPTION
     Dosage: UNK
     Route: 059
  2. IMPLANON [Suspect]
     Dosage: 1 68 MG ROD UP TO 3 YEARS
     Route: 059
     Dates: start: 20110622
  3. AMOXICILLIN [Concomitant]

REACTIONS (2)
  - Menstruation delayed [Recovered/Resolved]
  - Menorrhagia [Not Recovered/Not Resolved]
